FAERS Safety Report 6174247-0 (Version None)
Quarter: 2009Q2

REPORT INFORMATION
  Report Type: 
  Country: None (occurrence: None)
  Receive Date: 20090430
  Receipt Date: 20080317
  Transmission Date: 20091009
  Serious: No
  Sender: FDA-Public Use
  Company Number: US-ASTRAZENECA-2008UW05276

PATIENT
  Age: 73 Year
  Sex: Female

DRUGS (1)
  1. NEXIUM [Suspect]
     Indication: REFLUX OESOPHAGITIS
     Dosage: SAMPLE OF NEXIUM
     Route: 048
     Dates: start: 20080313

REACTIONS (2)
  - DRUG INEFFECTIVE [None]
  - REFLUX OESOPHAGITIS [None]
